FAERS Safety Report 4911954-9 (Version None)
Quarter: 2006Q1

REPORT INFORMATION
  Report Type: 
  Country: None (occurrence: None)
  Receive Date: 20060213
  Receipt Date: 20060202
  Transmission Date: 20060701
  Serious: Yes (Other)
  Sender: FDA-Public Use
  Company Number: HQWYE645603FEB06

PATIENT
  Sex: Male

DRUGS (4)
  1. EFFEXOR XR [Suspect]
     Indication: ANXIETY
     Dosage: 150 MG 1X PER 1 DAY ORAL; 300 MG 1X PER 1 DAY ORAL
     Route: 048
     Dates: end: 20060124
  2. EFFEXOR XR [Suspect]
     Indication: DEPRESSION
     Dosage: 150 MG 1X PER 1 DAY ORAL; 300 MG 1X PER 1 DAY ORAL
     Route: 048
     Dates: end: 20060124
  3. EFFEXOR XR [Suspect]
     Indication: ANXIETY
     Dosage: 150 MG 1X PER 1 DAY ORAL; 300 MG 1X PER 1 DAY ORAL
     Route: 048
     Dates: start: 20051123
  4. EFFEXOR XR [Suspect]
     Indication: DEPRESSION
     Dosage: 150 MG 1X PER 1 DAY ORAL; 300 MG 1X PER 1 DAY ORAL
     Route: 048
     Dates: start: 20051123

REACTIONS (5)
  - AGITATION [None]
  - DRUG INEFFECTIVE [None]
  - INSOMNIA [None]
  - SEROTONIN SYNDROME [None]
  - TENSION [None]
